FAERS Safety Report 20866421 (Version 1)
Quarter: 2022Q2

REPORT INFORMATION
  Report Type: Report from Study
  Country: CA (occurrence: CA)
  Receive Date: 20220524
  Receipt Date: 20220524
  Transmission Date: 20220720
  Serious: Yes (Hospitalization)
  Sender: FDA-Public Use
  Company Number: CA-JNJFOC-20220407397

PATIENT
  Age: 46 Year
  Sex: Female
  Weight: 106 kg

DRUGS (1)
  1. REMICADE [Suspect]
     Active Substance: INFLIXIMAB
     Indication: Colitis ulcerative
     Dosage: THERAPY START DATE ALSO REPORTED AS 17-MAY-2022
     Route: 042
     Dates: start: 20200813

REACTIONS (2)
  - Intestinal resection [Unknown]
  - Post procedural drainage [Unknown]

NARRATIVE: CASE EVENT DATE: 20220405
